FAERS Safety Report 9163162 (Version 1)
Quarter: 2013Q1

REPORT INFORMATION
  Report Type: Spontaneous
  Country: US (occurrence: None)
  Receive Date: 20130313
  Receipt Date: 20130313
  Transmission Date: 20140127
  Serious: Yes (Disabling)
  Sender: FDA-Public Use
  Company Number: None

PATIENT
  Age: 74 Year
  Sex: Female
  Weight: 91.17 kg

DRUGS (1)
  1. FUROSEMIDE [Suspect]
     Indication: CARDIAC OPERATION
     Route: 048
     Dates: start: 20121101, end: 20130309

REACTIONS (2)
  - Sudden hearing loss [None]
  - Deafness unilateral [None]
